FAERS Safety Report 4708407-X (Version None)
Quarter: 2005Q3

REPORT INFORMATION
  Report Type: 
  Country: None (occurrence: None)
  Receive Date: 20050707
  Receipt Date: 20050628
  Transmission Date: 20060218
  Serious: Yes (Hospitalization)
  Sender: FDA-Public Use
  Company Number: DE-ROCHE-409127

PATIENT
  Sex: Female
  Weight: 43 kg

DRUGS (5)
  1. CYMEVENE [Suspect]
     Indication: RENAL TRANSPLANT
     Route: 048
     Dates: start: 20031220, end: 20040326
  2. CELLCEPT [Suspect]
     Indication: RENAL TRANSPLANT
     Route: 048
     Dates: start: 20031220
  3. KEPINOL [Suspect]
     Indication: RENAL TRANSPLANT
     Route: 048
     Dates: start: 20031220, end: 20040401
  4. SANDIMMUNE [Concomitant]
     Indication: RENAL TRANSPLANT
     Route: 048
     Dates: start: 20031220
  5. URBASON [Concomitant]
     Indication: DRUG USE FOR UNKNOWN INDICATION
     Route: 048
     Dates: start: 20031220

REACTIONS (1)
  - AGRANULOCYTOSIS [None]
